FAERS Safety Report 9984549 (Version 6)
Quarter: 2015Q3

REPORT INFORMATION
  Report Type: Report from Study
  Country: US (occurrence: US)
  Receive Date: 20140307
  Receipt Date: 20150811
  Transmission Date: 20151125
  Serious: Yes (Other)
  Sender: FDA-Public Use
  Company Number: US-BAYER-2014-032679

PATIENT
  Age: 54 Year
  Sex: Male

DRUGS (3)
  1. NEXAVAR [Suspect]
     Active Substance: SORAFENIB
     Indication: HEPATIC CANCER
     Dosage: UNK
     Route: 048
     Dates: start: 20141008, end: 20141203
  2. NEXAVAR [Suspect]
     Active Substance: SORAFENIB
     Indication: HEPATIC CANCER
     Dosage: 400 MG, BID
     Route: 048
     Dates: start: 20140219, end: 20140219
  3. NEXAVAR [Suspect]
     Active Substance: SORAFENIB
     Indication: HEPATIC CANCER
     Dosage: 400 MG, BID
     Route: 048
     Dates: start: 20140219, end: 20140224

REACTIONS (5)
  - Chest pain [Recovered/Resolved]
  - Treatment noncompliance [None]
  - Abdominal pain [Recovered/Resolved]
  - Chromaturia [Recovered/Resolved]
  - Hepatic cancer [None]

NARRATIVE: CASE EVENT DATE: 20140224
